FAERS Safety Report 23324753 (Version 1)
Quarter: 2023Q4

REPORT INFORMATION
  Report Type: Spontaneous
  Country: US (occurrence: US)
  Receive Date: 20231221
  Receipt Date: 20231221
  Transmission Date: 20240110
  Serious: Yes (Hospitalization, Other)
  Sender: FDA-Public Use
  Company Number: US-MLMSERVICE-20231208-4107782-1

PATIENT
  Age: 15 Year
  Sex: Male

DRUGS (3)
  1. CLOZAPINE [Suspect]
     Active Substance: CLOZAPINE
     Indication: Schizophrenia
     Dosage: 200 MG IN THE MORNING, 100 MG IN THE AFTERNOON, 250 MG IN THE EVENING
  2. FLUOXETINE [Suspect]
     Active Substance: FLUOXETINE HYDROCHLORIDE
     Indication: Product used for unknown indication
     Dosage: 40 MG IN THE MORNING, 20 MG IN THE EVENING
  3. ZIPRASIDONE [Suspect]
     Active Substance: ZIPRASIDONE
     Indication: Schizophrenia

REACTIONS (5)
  - Catatonia [Recovered/Resolved]
  - Antipsychotic drug level increased [Recovered/Resolved]
  - Drug interaction [Recovered/Resolved]
  - Delirium [Recovered/Resolved]
  - Product prescribing error [Recovered/Resolved]
